FAERS Safety Report 5124293-0 (Version None)
Quarter: 2006Q4

REPORT INFORMATION
  Report Type: 
  Country: None (occurrence: None)
  Receive Date: 20061010
  Receipt Date: 20061003
  Transmission Date: 20070319
  Serious: Yes (Other)
  Sender: FDA-Public Use
  Company Number: AT-ROXANE LABORATORIES, INC-2006-BP-11574RO

PATIENT
  Age: 48 Year
  Sex: Male

DRUGS (3)
  1. LITHIUM CARBONATE [Suspect]
     Indication: BIPOLAR I DISORDER
     Dates: start: 19870101, end: 19880101
  2. LITHIUM CARBONATE [Suspect]
     Dates: end: 19940101
  3. LITHIUM CARBONATE [Suspect]
     Dates: start: 19950101, end: 20021201

REACTIONS (9)
  - ACTIVITIES OF DAILY LIVING IMPAIRED [None]
  - BUNDLE BRANCH BLOCK [None]
  - CARDIOMYOPATHY [None]
  - DECREASED ACTIVITY [None]
  - DYSPNOEA [None]
  - HYPOTHYROIDISM [None]
  - MANIA [None]
  - PALPITATIONS [None]
  - WEIGHT INCREASED [None]
